FAERS Safety Report 18123624 (Version 5)
Quarter: 2022Q3

REPORT INFORMATION
  Report Type: Spontaneous
  Country: US (occurrence: None)
  Receive Date: 20200807
  Receipt Date: 20220803
  Transmission Date: 20221026
  Serious: Yes (Hospitalization, Other)
  Sender: FDA-Public Use
  Company Number: 2020SE95710

PATIENT
  Age: 19394 Day
  Sex: Male
  Weight: 117 kg

DRUGS (74)
  1. FARXIGA [Suspect]
     Active Substance: DAPAGLIFLOZIN PROPANEDIOL
     Indication: Type 2 diabetes mellitus
     Route: 048
     Dates: start: 20171212
  2. FARXIGA [Suspect]
     Active Substance: DAPAGLIFLOZIN PROPANEDIOL
     Indication: Weight decreased
     Route: 048
     Dates: start: 20171212
  3. FARXIGA [Suspect]
     Active Substance: DAPAGLIFLOZIN PROPANEDIOL
     Indication: Hypotension
     Route: 048
     Dates: start: 20171212
  4. FARXIGA [Suspect]
     Active Substance: DAPAGLIFLOZIN PROPANEDIOL
     Indication: Type 2 diabetes mellitus
     Dosage: GENERIC
     Route: 048
     Dates: start: 20180320
  5. FARXIGA [Suspect]
     Active Substance: DAPAGLIFLOZIN PROPANEDIOL
     Indication: Weight decreased
     Dosage: GENERIC
     Route: 048
     Dates: start: 20180320
  6. FARXIGA [Suspect]
     Active Substance: DAPAGLIFLOZIN PROPANEDIOL
     Indication: Hypotension
     Dosage: GENERIC
     Route: 048
     Dates: start: 20180320
  7. FARXIGA [Suspect]
     Active Substance: DAPAGLIFLOZIN PROPANEDIOL
     Indication: Type 2 diabetes mellitus
     Route: 048
     Dates: start: 20170918, end: 20181218
  8. FARXIGA [Suspect]
     Active Substance: DAPAGLIFLOZIN PROPANEDIOL
     Indication: Weight decreased
     Route: 048
     Dates: start: 20170918, end: 20181218
  9. FARXIGA [Suspect]
     Active Substance: DAPAGLIFLOZIN PROPANEDIOL
     Indication: Hypotension
     Route: 048
     Dates: start: 20170918, end: 20181218
  10. FARXIGA [Suspect]
     Active Substance: DAPAGLIFLOZIN PROPANEDIOL
     Indication: Type 2 diabetes mellitus
     Route: 048
     Dates: start: 20171212, end: 20181208
  11. FARXIGA [Suspect]
     Active Substance: DAPAGLIFLOZIN PROPANEDIOL
     Indication: Weight decreased
     Route: 048
     Dates: start: 20171212, end: 20181208
  12. FARXIGA [Suspect]
     Active Substance: DAPAGLIFLOZIN PROPANEDIOL
     Indication: Hypotension
     Route: 048
     Dates: start: 20171212, end: 20181208
  13. LISINOPRIL [Concomitant]
     Active Substance: LISINOPRIL
     Dates: start: 20131104
  14. LIPITOR [Concomitant]
     Active Substance: ATORVASTATIN CALCIUM
  15. COREG [Concomitant]
     Active Substance: CARVEDILOL
  16. JANUVIA [Concomitant]
     Active Substance: SITAGLIPTIN PHOSPHATE
     Dates: start: 20200928
  17. CINNAMON [Concomitant]
     Active Substance: CINNAMON
  18. VITAMIN B [Concomitant]
     Active Substance: VITAMIN B
  19. FOLVITE [Concomitant]
     Active Substance: FOLIC ACID
     Dates: start: 20201005
  20. PLAVIX [Concomitant]
     Active Substance: CLOPIDOGREL BISULFATE
  21. PACERONE [Concomitant]
     Active Substance: AMIODARONE HYDROCHLORIDE
     Dates: start: 20201005
  22. BUMEX [Concomitant]
     Active Substance: BUMETANIDE
     Dates: start: 20201024
  23. CLEOCIN [Concomitant]
     Active Substance: CLINDAMYCIN PHOSPHATE
  24. HYDROCODONE [Concomitant]
     Active Substance: HYDROCODONE
  25. ASPIRIN [Concomitant]
     Active Substance: ASPIRIN
  26. MYLANTA [Concomitant]
     Active Substance: ALUMINUM HYDROXIDE\DIMETHICONE\MAGNESIUM HYDROXIDE
  27. CARDIZEM [Concomitant]
     Active Substance: DILTIAZEM HYDROCHLORIDE
  28. DEXTROSE [Concomitant]
     Active Substance: DEXTROSE
  29. LIDOCAINE [Concomitant]
     Active Substance: LIDOCAINE
  30. FENTANYL [Concomitant]
     Active Substance: FENTANYL
  31. MIDAZOLAM [Concomitant]
     Active Substance: MIDAZOLAM
  32. SODIUM BICARBONATE [Concomitant]
     Active Substance: SODIUM BICARBONATE
  33. HEPARIN [Concomitant]
     Active Substance: HEPARIN SODIUM
  34. ZOLPIDEM [Concomitant]
     Active Substance: ZOLPIDEM TARTRATE
  35. HYDROCHLOROTHIAZIDE [Concomitant]
     Active Substance: HYDROCHLOROTHIAZIDE
  36. TRULICITY [Concomitant]
     Active Substance: DULAGLUTIDE
  37. INSULIN NOS [Concomitant]
     Active Substance: INSULIN NOS
  38. VITAMIN B1 [Concomitant]
     Active Substance: THIAMINE HYDROCHLORIDE
  39. LOSARTAN [Concomitant]
     Active Substance: LOSARTAN
  40. TORSEMIDE [Concomitant]
     Active Substance: TORSEMIDE
  41. ALDACTONE [Concomitant]
     Active Substance: SPIRONOLACTONE
  42. PANTOPRAZOLE [Concomitant]
     Active Substance: PANTOPRAZOLE
  43. AMLODIPINE [Concomitant]
     Active Substance: AMLODIPINE BESYLATE
     Dates: start: 20201004
  44. TRESIBA [Concomitant]
     Active Substance: INSULIN DEGLUDEC
     Dates: start: 20200908
  45. ATORVASTATIN [Concomitant]
     Active Substance: ATORVASTATIN
     Dates: start: 20200908
  46. CLONIDINE [Concomitant]
     Active Substance: CLONIDINE
     Dates: start: 20200908
  47. METOPROLOL [Concomitant]
     Active Substance: METOPROLOL
     Dates: start: 20200908
  48. CEFACLOR [Concomitant]
     Active Substance: CEFACLOR
     Dates: start: 20200908
  49. CEPHALEXIN [Concomitant]
     Active Substance: CEPHALEXIN
     Dates: start: 20200908
  50. POTASSIUM CHLORIDE [Concomitant]
     Active Substance: POTASSIUM CHLORIDE
  51. VERAPAMIL HYDROCHLORIDE [Concomitant]
     Active Substance: VERAPAMIL HYDROCHLORIDE
  52. ALUMINIUM HYDROXIDE/ACETYLSALICYLATE CALCIUM [Concomitant]
  53. MAGNESIUM HYDROXIDE [Concomitant]
     Active Substance: MAGNESIUM HYDROXIDE
  54. BISACODYL [Concomitant]
     Active Substance: BISACODYL
  55. CYC?LOBENZAPRINE HYDROCHLORIDE [Concomitant]
  56. AMPICILLIN SODIUM/AMPICILLIN BENZATHINE [Concomitant]
  57. METOLAZONE [Concomitant]
     Active Substance: METOLAZONE
  58. SODIUM CHLORIDE [Concomitant]
     Active Substance: SODIUM CHLORIDE
  59. VITAMINS [Concomitant]
     Active Substance: VITAMINS
  60. POLYETHYLENE GLYCOL [Concomitant]
     Active Substance: POLYETHYLENE GLYCOL
  61. MALTOSE [Concomitant]
     Active Substance: MALTOSE
  62. BYDUREON [Concomitant]
     Active Substance: EXENATIDE
  63. DIFLUCAN [Concomitant]
     Active Substance: FLUCONAZOLE
  64. MULTAQ [Concomitant]
     Active Substance: DRONEDARONE
  65. PROBIOTICS NOS/NICOTINAMIDE/NICOTINIC ACID/CALCIUM PANTOTHENATE/TOCOTR [Concomitant]
  66. CHLORTHALIDONE [Concomitant]
     Active Substance: CHLORTHALIDONE
  67. LABETALOL [Concomitant]
     Active Substance: LABETALOL\LABETALOL HYDROCHLORIDE
  68. VANCOMYCIN [Concomitant]
     Active Substance: VANCOMYCIN
     Indication: Colitis
  69. ZOSYN [Concomitant]
     Active Substance: PIPERACILLIN SODIUM\TAZOBACTAM SODIUM
     Indication: Antibiotic therapy
  70. ELIQUIS [Concomitant]
     Active Substance: APIXABAN
     Indication: Anticoagulant therapy
  71. GLUCAGEN [Concomitant]
     Active Substance: GLUCAGON HYDROCHLORIDE
     Indication: Blood glucose decreased
  72. NITROSTAT [Concomitant]
     Active Substance: NITROGLYCERIN
     Indication: Myocardial infarction
  73. TYLENOL [Concomitant]
     Active Substance: ACETAMINOPHEN
     Indication: Pain
  74. BACITRACIN [Concomitant]
     Active Substance: BACITRACIN

REACTIONS (19)
  - Fournier^s gangrene [Unknown]
  - Hypertension [Unknown]
  - Hypoglycaemia [Unknown]
  - Colon cancer [Unknown]
  - Actinic keratosis [Unknown]
  - Wound infection [Unknown]
  - Gangrene [Unknown]
  - Chapped lips [Unknown]
  - Respiratory failure [Unknown]
  - Acute kidney injury [Unknown]
  - Scrotal abscess [Unknown]
  - Cardiac failure congestive [Unknown]
  - Arteriosclerosis coronary artery [Unknown]
  - Perineal abscess [Unknown]
  - Necrotising fasciitis [Unknown]
  - Chronic kidney disease [Unknown]
  - Renal failure [Unknown]
  - Perineal infection [Unknown]
  - Perirectal abscess [Unknown]

NARRATIVE: CASE EVENT DATE: 20171216
